FAERS Safety Report 9455862 (Version 1)
Quarter: 2013Q3

REPORT INFORMATION
  Report Type: Spontaneous
  Country: IT (occurrence: IT)
  Receive Date: 20130813
  Receipt Date: 20130813
  Transmission Date: 20140515
  Serious: Yes (Hospitalization)
  Sender: FDA-Public Use
  Company Number: IT-ELI_LILLY_AND_COMPANY-IT201308002119

PATIENT
  Sex: Male

DRUGS (3)
  1. ZYPREXA [Suspect]
     Indication: DRUG ABUSE
     Dosage: 5 DF, SINGLE
     Route: 048
     Dates: start: 20130715, end: 20130715
  2. RIVOTRIL [Suspect]
     Indication: DRUG ABUSE
     Dosage: 5 DF, SINGLE
     Route: 048
     Dates: start: 20130715, end: 20130715
  3. PROZIN /00011902/ [Suspect]
     Indication: DRUG ABUSE
     Dosage: 5 DF, SINGLE
     Route: 048
     Dates: start: 20130715, end: 20130715

REACTIONS (2)
  - Dysphoria [Unknown]
  - Drug abuse [Unknown]
